FAERS Safety Report 17980474 (Version 1)
Quarter: 2020Q3

REPORT INFORMATION
  Report Type: Spontaneous
  Country: PL (occurrence: PL)
  Receive Date: 20200703
  Receipt Date: 20200703
  Transmission Date: 20201103
  Serious: Yes (Hospitalization)
  Sender: FDA-Public Use
  Company Number: PL-ROCHE-2634359

PATIENT
  Sex: Female

DRUGS (2)
  1. XELODA [Suspect]
     Active Substance: CAPECITABINE
     Indication: NEOPLASM MALIGNANT
     Route: 048
  2. TRIVED [Suspect]
     Active Substance: TRIMETAZIDINE DIHYDROCHLORIDE
     Indication: NEOPLASM MALIGNANT
     Route: 065

REACTIONS (17)
  - Conjunctivitis [Unknown]
  - Hiccups [Unknown]
  - Pneumonia [Unknown]
  - Dysarthria [Unknown]
  - Vertigo [Unknown]
  - Dehydration [Unknown]
  - Depression [Unknown]
  - Coordination abnormal [Unknown]
  - Hypotension [Unknown]
  - Fatigue [Unknown]
  - Balance disorder [Unknown]
  - Somnolence [Unknown]
  - Dyspnoea [Unknown]
  - Dizziness [Unknown]
  - Deafness [Unknown]
  - Slow speech [Unknown]
  - Memory impairment [Unknown]
